FAERS Safety Report 7433003-3 (Version None)
Quarter: 2011Q2

REPORT INFORMATION
  Report Type: 
  Country: None (occurrence: None)
  Receive Date: 20110422
  Receipt Date: 20110413
  Transmission Date: 20111010
  Serious: No
  Sender: FDA-Public Use
  Company Number: US-B.I. PHARMACEUTICALS,INC./RIDGEFIELD-2011-BP-10772BP

PATIENT
  Sex: Female

DRUGS (10)
  1. COUMADIN [Concomitant]
     Dosage: 2.5 MG
     Route: 048
     Dates: start: 20100812
  2. COUMADIN [Concomitant]
     Dosage: 5 MG
     Route: 048
     Dates: start: 20100812
  3. XANAX [Concomitant]
     Indication: ANXIETY
     Dosage: 1 MG
     Route: 048
  4. COUMADIN [Concomitant]
     Dosage: 2.5 MG
     Route: 048
     Dates: start: 20080801, end: 20110323
  5. PRADAXA [Suspect]
     Indication: ATRIAL FIBRILLATION
     Dosage: 300 MG
     Route: 048
     Dates: start: 20110323, end: 20110412
  6. DIGOXIN [Concomitant]
     Indication: ATRIAL FIBRILLATION
     Dosage: 1.25 MG
     Route: 048
  7. ROBAXIN [Concomitant]
     Indication: BACK DISORDER
     Route: 048
  8. INDERAL [Concomitant]
     Indication: ATRIAL FIBRILLATION
     Dosage: 20 MG
     Route: 048
  9. COUMADIN [Concomitant]
     Indication: THROMBOSIS
     Dosage: 5 MG
     Route: 048
     Dates: start: 20080801, end: 20110323
  10. PROMETRIUM [Concomitant]
     Indication: MENOPAUSE
     Dosage: 200 MG
     Route: 048

REACTIONS (5)
  - DIZZINESS [None]
  - FEELING DRUNK [None]
  - SWELLING FACE [None]
  - OEDEMA PERIPHERAL [None]
  - RASH [None]
